FAERS Safety Report 14948521 (Version 1)
Quarter: 2018Q2

REPORT INFORMATION
  Report Type: Spontaneous
  Country: FR (occurrence: FR)
  Receive Date: 20180529
  Receipt Date: 20180529
  Transmission Date: 20180711
  Serious: Yes (Hospitalization)
  Sender: FDA-Public Use
  Company Number: FR-TEVA-2018-FR-897380

PATIENT
  Age: 36 Year
  Sex: Female

DRUGS (16)
  1. LOXAPINE (SUCCINATE DE) [Concomitant]
     Active Substance: LOXAPINE SUCCINATE
     Route: 065
  2. RISPERDAL [Suspect]
     Active Substance: RISPERIDONE
     Indication: PERSONALITY DISORDER
     Route: 048
     Dates: start: 20171219, end: 20180212
  3. ESOMEPRAZOLE [Concomitant]
     Active Substance: ESOMEPRAZOLE
     Route: 065
  4. MIDODRINE (CHLORHYDRATE) [Concomitant]
     Route: 065
  5. VENTOLINE [Concomitant]
     Active Substance: ALBUTEROL
     Route: 065
  6. ZOPICLONE [Concomitant]
     Active Substance: ZOPICLONE
     Route: 065
  7. MIRTAZAPINE. [Concomitant]
     Active Substance: MIRTAZAPINE
     Route: 065
  8. TOPIRAMATE. [Concomitant]
     Active Substance: TOPIRAMATE
     Route: 065
  9. PREGABALINE [Concomitant]
     Active Substance: PREGABALIN
     Route: 065
  10. PRAZEPAM [Concomitant]
     Active Substance: PRAZEPAM
     Route: 065
  11. AMOXICILLINE [Concomitant]
     Active Substance: AMOXICILLIN
     Route: 065
  12. PREDNISOLONE. [Concomitant]
     Active Substance: PREDNISOLONE
     Route: 065
  13. LAMALINE (ACETAMINOPHEN\BELLADONNA LEAF\CAFFEINE\OPIUM) [Concomitant]
     Active Substance: ACETAMINOPHEN\BELLADONNA LEAF\CAFFEINE\OPIUM
     Route: 065
  14. LEVOCETIRIZINE (DICHLORHYDRATE DE) [Concomitant]
     Route: 065
  15. FLUOXETINE [Suspect]
     Active Substance: FLUOXETINE HYDROCHLORIDE
     Indication: DEPRESSION
     Dosage: 40 MILLIGRAM DAILY;
     Route: 048
     Dates: start: 201702, end: 20180212
  16. RISPERDAL [Suspect]
     Active Substance: RISPERIDONE
     Route: 048
     Dates: start: 20171206, end: 20171212

REACTIONS (1)
  - Pneumonia [Recovering/Resolving]

NARRATIVE: CASE EVENT DATE: 20180202
